FAERS Safety Report 8797593 (Version 1)
Quarter: 2012Q4

REPORT INFORMATION
  Report Type: 
  Country: US (occurrence: US)
  Receive Date: 20120920
  Receipt Date: 20120920
  Transmission Date: 20130627
  Serious: Yes (Hospitalization)
  Sender: FDA-Public Use
  Company Number: US-AMGEN-USASP2012059073

PATIENT
  Age: 67 Year
  Sex: Male

DRUGS (1)
  1. ENBREL [Suspect]
     Indication: RHEUMATOID ARTHRITIS
     Dosage: 50 UNK, qwk
     Route: 058
     Dates: start: 20070615, end: 20080615

REACTIONS (7)
  - Peripheral vascular disorder [Recovered/Resolved]
  - Cerebrovascular accident [Recovered/Resolved with Sequelae]
  - Hip fracture [Recovered/Resolved]
  - Staphylococcal infection [Recovered/Resolved]
  - Rheumatoid nodule [Not Recovered/Not Resolved]
  - Fall [Recovered/Resolved]
  - Drug hypersensitivity [Recovered/Resolved with Sequelae]
